FAERS Safety Report 8525388-1 (Version None)
Quarter: 2012Q3

REPORT INFORMATION
  Report Type: 
  Country: None (occurrence: None)
  Receive Date: 20120710
  Receipt Date: 20120705
  Transmission Date: 20120928
  Serious: Yes (Death, Hospitalization)
  Sender: FDA-Public Use
  Company Number: 2011027280

PATIENT
  Age: 57 Year
  Sex: Female

DRUGS (6)
  1. VITAMIN A /00056001/ (RETINOL) [Concomitant]
  2. PRIVIGEN [Suspect]
  3. PRIVIGEN [Suspect]
     Indication: XANTHOGRANULOMA
     Dosage: SEE IMAGE
     Route: 042
     Dates: start: 20101214, end: 20101217
  4. PRIVIGEN [Suspect]
     Indication: XANTHOGRANULOMA
     Dosage: SEE IMAGE
     Route: 042
     Dates: start: 20101217, end: 20101217
  5. PRIVIGEN [Suspect]
     Indication: XANTHOGRANULOMA
     Dosage: SEE IMAGE
     Route: 042
     Dates: start: 20101214, end: 20101217
  6. ACETAMINOPHEN [Concomitant]

REACTIONS (15)
  - ISCHAEMIC CEREBRAL INFARCTION [None]
  - BLOOD PRESSURE DECREASED [None]
  - CREUTZFELDT-JAKOB DISEASE [None]
  - HAEMOGLOBIN DECREASED [None]
  - HEADACHE [None]
  - HOT FLUSH [None]
  - VOMITING [None]
  - HYPERVISCOSITY SYNDROME [None]
  - DIZZINESS [None]
  - ENCEPHALOPATHY [None]
  - THROMBOCYTOPENIA [None]
  - OFF LABEL USE [None]
  - LACUNAR INFARCTION [None]
  - NAUSEA [None]
  - ENCEPHALITIS [None]
